FAERS Safety Report 15004179 (Version 1)
Quarter: 2018Q2

REPORT INFORMATION
  Report Type: Spontaneous
  Country: US (occurrence: US)
  Receive Date: 20180524
  Receipt Date: 20180524
  Transmission Date: 20180711
  Serious: Yes (Other)
  Sender: FDA-Public Use
  Company Number: None

PATIENT
  Age: 4 Day
  Sex: Male
  Weight: 1.51 kg

DRUGS (2)
  1. CALCIUM CHLORIDE. [Concomitant]
     Active Substance: CALCIUM CHLORIDE
     Dates: start: 20180519, end: 20180519
  2. CALCIUM CHLORIDE. [Suspect]
     Active Substance: CALCIUM CHLORIDE
     Indication: PREMATURE BABY
     Route: 041
     Dates: start: 20180519

REACTIONS (3)
  - Infusion site pain [None]
  - Infusion site extravasation [None]
  - Wrong technique in product usage process [None]

NARRATIVE: CASE EVENT DATE: 20180519
